FAERS Safety Report 24187423 (Version 2)
Quarter: 2024Q3

REPORT INFORMATION
  Report Type: Spontaneous
  Country: FR (occurrence: FR)
  Receive Date: 20240808
  Receipt Date: 20240902
  Transmission Date: 20241016
  Serious: Yes (Life-Threatening, Hospitalization)
  Sender: JOHNSON AND JOHNSON
  Company Number: FR-JNJFOC-20240817113

PATIENT
  Age: 70 Year
  Sex: Male
  Weight: 94 kg

DRUGS (12)
  1. ERLEADA [Suspect]
     Active Substance: APALUTAMIDE
     Indication: Hormone-dependent prostate cancer
     Route: 048
     Dates: start: 20240621, end: 20240806
  2. ALFUZOSIN [Concomitant]
     Active Substance: ALFUZOSIN
     Indication: Prostatomegaly
     Dates: end: 20240813
  3. ALPRAZOLAM [Concomitant]
     Active Substance: ALPRAZOLAM
     Dates: end: 20240813
  4. HERBALS\SAW PALMETTO [Concomitant]
     Active Substance: HERBALS\SAW PALMETTO
     Dates: end: 20240813
  5. FILGRASTIM [Concomitant]
     Active Substance: FILGRASTIM
  6. LINEZOLID [Concomitant]
     Active Substance: LINEZOLID
  7. CILASTATIN SODIUM\IMIPENEM [Concomitant]
     Active Substance: CILASTATIN SODIUM\IMIPENEM
  8. CANCIDAS [Concomitant]
     Active Substance: CASPOFUNGIN ACETATE
  9. AMIKACIN [Concomitant]
     Active Substance: AMIKACIN
  10. CEFTRIAXONE SODIUM [Concomitant]
     Active Substance: CEFTRIAXONE SODIUM
  11. FILGRASTIM [Concomitant]
     Active Substance: FILGRASTIM
  12. PIPERACILLIN SODIUM\TAZOBACTAM SODIUM [Concomitant]
     Active Substance: PIPERACILLIN SODIUM\TAZOBACTAM SODIUM

REACTIONS (2)
  - Febrile bone marrow aplasia [Not Recovered/Not Resolved]
  - Large intestine infection [Not Recovered/Not Resolved]

NARRATIVE: CASE EVENT DATE: 20240805
